FAERS Safety Report 8560927-6 (Version None)
Quarter: 2012Q3

REPORT INFORMATION
  Report Type: 
  Country: None (occurrence: None)
  Receive Date: 20120802
  Receipt Date: 20120726
  Transmission Date: 20120928
  Serious: Yes (Hospitalization)
  Sender: FDA-Public Use
  Company Number: ES-ELI_LILLY_AND_COMPANY-ES201207008389

PATIENT
  Sex: Female
  Weight: 89 kg

DRUGS (6)
  1. LORAZEPAM [Concomitant]
     Indication: SLEEP DISORDER
     Dosage: 2 MG, TID
     Route: 048
  2. PANTOPRAZOLE [Concomitant]
     Dosage: 40 MG, QD
     Route: 048
  3. LEVOTHYROXINE SODIUM [Concomitant]
     Indication: THYROID DISORDER
     Dosage: UNK
     Route: 048
  4. ALDACTONE [Concomitant]
     Indication: DIURETIC THERAPY
     Dosage: 100 DF, UNK
     Route: 048
  5. FORTEO [Suspect]
     Indication: OSTEOPOROSIS
     Dosage: 20 UG, QD
     Route: 058
     Dates: start: 20120521
  6. IMURAN [Concomitant]
     Indication: RHEUMATOID ARTHRITIS
     Dosage: 50 DF, QD
     Route: 048

REACTIONS (2)
  - INJECTION SITE ERYTHEMA [None]
  - INVESTIGATION [None]
